FAERS Safety Report 4450759-2 (Version None)
Quarter: 2004Q3

REPORT INFORMATION
  Report Type: 
  Country: None (occurrence: None)
  Receive Date: 20040913
  Receipt Date: 20040913
  Transmission Date: 20050211
  Serious: No
  Sender: FDA-Public Use
  Company Number: None

PATIENT
  Sex: Female
  Weight: 22.6799 kg

DRUGS (1)
  1. NIX [Suspect]
     Indication: LICE INFESTATION
     Dosage: ONE BOTTLE (2 OZ) WAS USED, ONE TIME, COMPLETELY SATURATING HAIR AND ONTO SCALP
     Dates: start: 20040810, end: 20040810

REACTIONS (4)
  - DRUG INEFFECTIVE [None]
  - NASAL CONGESTION [None]
  - PHARYNGOLARYNGEAL PAIN [None]
  - RHINORRHOEA [None]
